FAERS Safety Report 18270480 (Version 1)
Quarter: 2020Q3

REPORT INFORMATION
  Report Type: Spontaneous
  Country: DE (occurrence: DE)
  Receive Date: 20200915
  Receipt Date: 20200915
  Transmission Date: 20201103
  Serious: Yes (Other)
  Sender: FDA-Public Use
  Company Number: DE-MYLANLABS-2020M1077914

PATIENT
  Age: 52 Year
  Sex: Male
  Weight: 99 kg

DRUGS (7)
  1. LONQUEX [Suspect]
     Active Substance: LIPEGFILGRASTIM
     Indication: BREAST CANCER
     Dosage: 6 MILLIGRAM (0.33 WEEK)
     Route: 058
     Dates: start: 20200123
  2. OCREVUS [Suspect]
     Active Substance: OCRELIZUMAB
     Indication: MULTIPLE SCLEROSIS
     Dosage: RECEIVED THE MOST RECENT DOSE ON 24/APR/2019 (600 MG, 6 MONTHLY)
     Route: 042
     Dates: start: 20180326
  3. DOCETAXEL. [Suspect]
     Active Substance: DOCETAXEL
     Indication: BREAST CANCER
     Dosage: 160 MILLIGRAM (0.33 WEEK)
     Route: 042
     Dates: start: 20200123
  4. TRASTUZUMAB. [Suspect]
     Active Substance: TRASTUZUMAB
     Indication: BREAST CANCER
     Dosage: 636 MILLIGRAM (0.33 WEEK)
     Route: 041
     Dates: start: 20200123
  5. HERZUMA [Suspect]
     Active Substance: TRASTUZUMAB-PKRB
     Indication: BREAST CANCER
     Dosage: 420 MILLIGRAM (0.33 WEEK)
     Route: 042
     Dates: start: 20200123
  6. PERJETA [Suspect]
     Active Substance: PERTUZUMAB
     Indication: BREAST CANCER
     Dosage: 420 MILLIGRAM (0.33 WEEK)
     Route: 042
     Dates: start: 20200123
  7. BONDRONAT                          /01304701/ [Suspect]
     Active Substance: IBANDRONATE SODIUM
     Indication: BREAST CANCER
     Dosage: UNK (0.33 WEEK)
     Route: 042
     Dates: start: 20200123

REACTIONS (3)
  - Breast cancer [Not Recovered/Not Resolved]
  - Rectal polyp [Recovered/Resolved]
  - Cardiac failure [Unknown]

NARRATIVE: CASE EVENT DATE: 20191219
